FAERS Safety Report 7570807-0 (Version None)
Quarter: 2011Q2

REPORT INFORMATION
  Report Type: 
  Country: None (occurrence: None)
  Receive Date: 20110624
  Receipt Date: 20110525
  Transmission Date: 20111010
  Serious: No
  Sender: FDA-Public Use
  Company Number: US-ALLERGAN-1107191US

PATIENT
  Age: 52 Year
  Sex: Female

DRUGS (2)
  1. BLINX [Concomitant]
  2. LATISSE [Suspect]
     Indication: GROWTH OF EYELASHES
     Dosage: UNK
     Dates: start: 20110510

REACTIONS (1)
  - BLEPHAROSPASM [None]
